FAERS Safety Report 4915780-6 (Version None)
Quarter: 2006Q1

REPORT INFORMATION
  Report Type: 
  Country: None (occurrence: None)
  Receive Date: 20060214
  Receipt Date: 20060131
  Transmission Date: 20060701
  Serious: Yes (Other)
  Sender: FDA-Public Use
  Company Number: US200601003229

PATIENT
  Age: 52 Year
  Sex: Female

DRUGS (3)
  1. ZYPREXA [Suspect]
     Indication: BIPOLAR DISORDER
     Dosage: 30 MG, ORAL
     Route: 048
     Dates: start: 20050901, end: 20060127
  2. REMERON [Concomitant]
  3. TRILEPTAL [Concomitant]

REACTIONS (7)
  - BLOOD CHOLESTEROL INCREASED [None]
  - BLOOD GLUCOSE INCREASED [None]
  - HEPATITIS C [None]
  - LOW DENSITY LIPOPROTEIN INCREASED [None]
  - PANCREATITIS [None]
  - PRESCRIBED OVERDOSE [None]
  - TREATMENT NONCOMPLIANCE [None]
